FAERS Safety Report 11075822 (Version 1)
Quarter: 2015Q2

REPORT INFORMATION
  Report Type: Spontaneous
  Country: US (occurrence: US)
  Receive Date: 20150429
  Receipt Date: 20150429
  Transmission Date: 20150821
  Serious: Yes (Hospitalization, Other)
  Sender: FDA-Public Use
  Company Number: US-BRISTOL-MYERS SQUIBB COMPANY-19939974

PATIENT
  Age: 70 Year
  Sex: Male

DRUGS (1)
  1. METFORMIN HYDROCHLORIDE. [Suspect]
     Active Substance: METFORMIN HYDROCHLORIDE
     Indication: TYPE 2 DIABETES MELLITUS
     Dosage: 500 MG, BID
     Route: 065

REACTIONS (10)
  - Kussmaul respiration [Unknown]
  - Acute kidney injury [Unknown]
  - Rales [Unknown]
  - Dyspnoea [Unknown]
  - Heart rate decreased [Unknown]
  - Lactic acidosis [Recovered/Resolved]
  - Heart sounds abnormal [Unknown]
  - Chest pain [Unknown]
  - Drug administration error [Unknown]
  - Blood pressure increased [Unknown]
